FAERS Safety Report 9742298 (Version 2)
Quarter: 2014Q1

REPORT INFORMATION
  Report Type: Spontaneous
  Country: US (occurrence: US)
  Receive Date: 20131210
  Receipt Date: 20140106
  Transmission Date: 20141002
  Serious: Yes (Death)
  Sender: FDA-Public Use
  Company Number: US-CELGENEUS-163-21880-13115949

PATIENT
  Age: 60 Year
  Sex: Female

DRUGS (42)
  1. REVLIMID [Suspect]
     Indication: PLASMA CELL MYELOMA
     Dosage: 25 MILLIGRAM
     Route: 048
     Dates: start: 20130823, end: 20130927
  2. LASIX [Concomitant]
     Indication: PRODUCT USED FOR UNKNOWN INDICATION
     Dosage: 40MG/4ML
     Route: 041
  3. LASIX [Concomitant]
     Dosage: 20 MILLIGRAM
     Route: 048
  4. MAALOX [Concomitant]
     Indication: DYSPEPSIA
     Route: 048
  5. NORMAL SALINE [Concomitant]
     Indication: PRODUCT USED FOR UNKNOWN INDICATION
     Route: 041
  6. PHENERGAN [Concomitant]
     Indication: NAUSEA
     Route: 041
  7. PHENERGAN [Concomitant]
     Indication: VOMITING
  8. ACETAMINOPHEN [Concomitant]
     Indication: PAIN
     Route: 041
  9. ATROPINE [Concomitant]
     Indication: PRODUCT USED FOR UNKNOWN INDICATION
     Route: 047
  10. BISACODYL [Concomitant]
     Indication: CONSTIPATION
     Dosage: 10 MILLIGRAM
     Route: 054
  11. CHLORHEXIDINE [Concomitant]
     Indication: PRODUCT USED FOR UNKNOWN INDICATION
     Route: 048
  12. DEXAMETHASONE [Concomitant]
     Indication: PRODUCT USED FOR UNKNOWN INDICATION
     Route: 041
  13. FENTANYL [Concomitant]
     Indication: PRODUCT USED FOR UNKNOWN INDICATION
     Route: 062
  14. FENTANYL [Concomitant]
     Route: 062
  15. HEPARIN [Concomitant]
     Indication: PRODUCT USED FOR UNKNOWN INDICATION
     Route: 041
  16. HEPARIN [Concomitant]
     Route: 041
  17. HEPARIN [Concomitant]
     Route: 041
  18. LACTULOSE [Concomitant]
     Indication: CONSTIPATION
     Route: 048
  19. LORAZEPAM [Concomitant]
     Indication: ANXIETY
     Route: 041
  20. LORAZEPAM [Concomitant]
     Route: 048
  21. MORPHINE [Concomitant]
     Indication: PAIN
     Route: 041
  22. MORPHINE [Concomitant]
     Route: 048
  23. MORPHINE [Concomitant]
     Route: 048
  24. NYSTATIN [Concomitant]
     Indication: PRODUCT USED FOR UNKNOWN INDICATION
     Route: 061
  25. LIDOCAINE [Concomitant]
     Indication: PRODUCT USED FOR UNKNOWN INDICATION
     Route: 061
  26. LIDOCAINE [Concomitant]
     Route: 061
  27. SODIUM CHLORIDE [Concomitant]
     Indication: PRODUCT USED FOR UNKNOWN INDICATION
     Route: 041
  28. SODIUM CHLORIDE [Concomitant]
     Route: 041
  29. SODIUM CHLORIDE [Concomitant]
     Route: 041
  30. BLM [Concomitant]
     Indication: PAIN
     Route: 048
  31. COLACE [Concomitant]
     Indication: CONSTIPATION
     Route: 048
  32. ALBUTEROL [Concomitant]
     Indication: WHEEZING
     Route: 048
  33. ALBUTEROL [Concomitant]
     Dosage: 2.5MG/3ML
     Route: 048
  34. ASPIRIN [Concomitant]
     Indication: PRODUCT USED FOR UNKNOWN INDICATION
     Dosage: 81 MILLIGRAM
     Route: 048
  35. CODEINE-GUAFENESIN [Concomitant]
     Indication: PRODUCT USED FOR UNKNOWN INDICATION
     Dosage: 100MG/5ML
     Route: 048
  36. LISINOPRIL [Concomitant]
     Indication: PRODUCT USED FOR UNKNOWN INDICATION
     Dosage: 20 MILLIGRAM
     Route: 048
  37. MAGNESIUM CITRATE [Concomitant]
     Indication: PRODUCT USED FOR UNKNOWN INDICATION
     Route: 048
  38. OMEPRAZOLE [Concomitant]
     Indication: PRODUCT USED FOR UNKNOWN INDICATION
     Route: 048
  39. ZOFRAN [Concomitant]
     Indication: NAUSEA
     Route: 041
  40. ZOFRAN [Concomitant]
     Indication: VOMITING
  41. MIDODRINE [Concomitant]
     Indication: PRODUCT USED FOR UNKNOWN INDICATION
     Route: 065
  42. ANTIBIOTICS [Concomitant]
     Indication: INFECTION PROPHYLAXIS
     Route: 065

REACTIONS (4)
  - Aspiration [Fatal]
  - Acute respiratory failure [Fatal]
  - Plasma cell myeloma [Fatal]
  - Cardiac failure congestive [Fatal]
